FAERS Safety Report 8920292 (Version 2)
Quarter: 2012Q4

REPORT INFORMATION
  Report Type: 
  Country: GB (occurrence: GB)
  Receive Date: 20121122
  Receipt Date: 20121207
  Transmission Date: 20130627
  Serious: Yes (Hospitalization, Other)
  Sender: FDA-Public Use
  Company Number: GB-JNJFOC-2007035756

PATIENT
  Age: 8 Year
  Sex: Male

DRUGS (3)
  1. IBUPROFEN [Suspect]
     Indication: VIRAEMIA
     Dosage: Daily Dose Qty: 600 mg
     Route: 048
  2. CEFTRIAXONE [Concomitant]
     Route: 042
  3. PARACETAMOL [Concomitant]
     Indication: VIRAEMIA
     Dosage: Daily Dose Qty: 2000 mg

REACTIONS (18)
  - Renal papillary necrosis [Recovered/Resolved]
  - Ureteric obstruction [Recovered/Resolved]
  - Abdominal pain [Recovered/Resolved]
  - Anuria [Recovered/Resolved]
  - Back pain [Recovered/Resolved]
  - Somnolence [Unknown]
  - Pyrexia [Recovered/Resolved]
  - Rash macular [Recovered/Resolved]
  - Oedema peripheral [Unknown]
  - Peritonitis [Unknown]
  - Renal disorder [Recovered/Resolved]
  - Blood creatinine increased [Recovered/Resolved]
  - Musculoskeletal stiffness [Unknown]
  - Malaise [Unknown]
  - Ureteral disorder [Recovered/Resolved]
  - Urethral haemorrhage [Unknown]
  - Urine output decreased [Recovered/Resolved]
  - Vomiting [Recovered/Resolved]
